FAERS Safety Report 6467491-6 (Version None)
Quarter: 2009Q4

REPORT INFORMATION
  Report Type: 
  Country: None (occurrence: None)
  Receive Date: 20091202
  Receipt Date: 20091124
  Transmission Date: 20100525
  Serious: Yes (Hospitalization)
  Sender: FDA-Public Use
  Company Number: US-NOVOPROD-292106

PATIENT
  Sex: Female

DRUGS (1)
  1. NOVOLOG [Suspect]
     Indication: DIABETES MELLITUS
     Route: 058

REACTIONS (2)
  - DEVICE FAILURE [None]
  - LOSS OF CONSCIOUSNESS [None]
